FAERS Safety Report 15822830 (Version 2)
Quarter: 2019Q4

REPORT INFORMATION
  Report Type: Report from Study
  Country: None (occurrence: US)
  Receive Date: 20190114
  Receipt Date: 20191214
  Transmission Date: 20200122
  Serious: Yes (Death)
  Sender: FDA-Public Use
  Company Number: US-ABBVIE-18K-163-2561928-00

PATIENT
  Sex: Male
  Weight: 84.1 kg

DRUGS (1)
  1. VENCLEXTA [Suspect]
     Active Substance: VENETOCLAX
     Indication: ACUTE MYELOID LEUKAEMIA RECURRENT
     Route: 048

REACTIONS (2)
  - Death [Fatal]
  - Off label use [Unknown]
